FAERS Safety Report 5628830-9 (Version None)
Quarter: 2008Q1

REPORT INFORMATION
  Report Type: 
  Country: None (occurrence: None)
  Receive Date: 20080215
  Receipt Date: 20080204
  Transmission Date: 20080703
  Serious: Yes (Other)
  Sender: FDA-Public Use
  Company Number: US-PFIZER INC-2008012858

PATIENT
  Sex: Male

DRUGS (2)
  1. CHANTIX [Suspect]
     Indication: SMOKING CESSATION THERAPY
     Dates: start: 20080101, end: 20080201
  2. SEROQUEL [Concomitant]

REACTIONS (9)
  - ABDOMINAL PAIN UPPER [None]
  - BACK PAIN [None]
  - CONSTIPATION [None]
  - DEMENTIA [None]
  - DIARRHOEA [None]
  - FEELING ABNORMAL [None]
  - MALAISE [None]
  - MEMORY IMPAIRMENT [None]
  - SMOKER [None]
